FAERS Safety Report 9108522 (Version 2)
Quarter: 2013Q1

REPORT INFORMATION
  Report Type: Spontaneous
  Country: US (occurrence: US)
  Receive Date: 20130222
  Receipt Date: 20130228
  Transmission Date: 20140127
  Serious: Yes (Hospitalization, Other)
  Sender: FDA-Public Use
  Company Number: US-BAYER-2013-021093

PATIENT
  Age: 40 Year
  Sex: Female
  Weight: 92.06 kg

DRUGS (8)
  1. OCELLA [Suspect]
     Indication: CONTRACEPTION
     Dosage: UNK
     Dates: start: 2007, end: 20110608
  2. OCELLA [Suspect]
     Indication: CONTRACEPTION
     Dosage: UNK
     Dates: start: 201004
  3. VENOFER [Concomitant]
     Indication: IRON DEFICIENCY ANAEMIA
  4. ANTIFUNGALS [Concomitant]
  5. LEVOTHYROXINE [Concomitant]
     Dosage: UNK
     Dates: start: 1988
  6. GUAIFENESIN [Concomitant]
  7. CODEINE COMPOUND [Concomitant]
  8. TYLENOL [Concomitant]
     Dosage: UNK UNK, PRN

REACTIONS (7)
  - Bronchial haemorrhage [None]
  - Pulmonary haemorrhage [None]
  - Thrombophlebitis superficial [None]
  - Injury [None]
  - Pain [None]
  - Pain [None]
  - Venous thrombosis [None]
